FAERS Safety Report 11796855 (Version 2)
Quarter: 2015Q4

REPORT INFORMATION
  Report Type: Report from Study
  Country: TR (occurrence: TR)
  Receive Date: 20151203
  Receipt Date: 20151209
  Transmission Date: 20160305
  Serious: Yes (Death, Life-Threatening)
  Sender: FDA-Public Use
  Company Number: TR-ROCHE-1646291

PATIENT
  Age: 43 Year
  Sex: Male

DRUGS (2)
  1. COBIMETINIB [Suspect]
     Active Substance: COBIMETINIB
     Indication: MALIGNANT MELANOMA
     Dosage: THREE TABLETS ON EACH DAY TAKEN ?DOSE TAKEN FROM PROTOCOL
     Route: 048
     Dates: start: 20150824, end: 20150925
  2. VEMURAFENIB [Suspect]
     Active Substance: VEMURAFENIB
     Indication: MALIGNANT MELANOMA
     Route: 048
     Dates: start: 20150807, end: 20150925

REACTIONS (2)
  - Acute kidney injury [Fatal]
  - Pneumonitis [Fatal]

NARRATIVE: CASE EVENT DATE: 201509
